FAERS Safety Report 9456098 (Version 2)
Quarter: 2014Q1

REPORT INFORMATION
  Report Type: Report from Study
  Country: DE (occurrence: DE)
  Receive Date: 20130813
  Receipt Date: 20140327
  Transmission Date: 20141002
  Serious: Yes (Hospitalization, Other)
  Sender: FDA-Public Use
  Company Number: DE-ACTELION-A-CH2013-86818

PATIENT
  Age: 54 Year
  Sex: Female
  Weight: 69 kg

DRUGS (9)
  1. TRACLEER [Suspect]
     Indication: SKIN ULCER
     Dosage: 125 MG, BID
     Route: 048
     Dates: start: 20110823, end: 20120525
  2. TRACLEER [Suspect]
     Dosage: 62.5 MG, BID
     Route: 048
     Dates: start: 20110726, end: 20110822
  3. TRACLEER [Suspect]
     Dosage: 62.5 MG, BID
     Route: 048
     Dates: start: 20131219, end: 20140114
  4. ASPIRIN [Concomitant]
     Indication: MYOCARDIAL INFARCTION
     Dosage: 100 MG, UNK
  5. INSPRA [Concomitant]
     Indication: HYPERTENSION
     Dosage: 25 MG, UNK
  6. METOPROLOL [Concomitant]
     Indication: HYPERTENSION
     Dosage: 47.5 MG, UNK
  7. RAMILICH [Concomitant]
     Indication: HYPERTENSION
     Dosage: 2.5 MG, UNK
  8. PRAVASTATIN [Concomitant]
     Indication: METABOLIC DISORDER
     Dosage: 10 MG, UNK
  9. OMEPRAZOLE [Concomitant]
     Indication: GASTROOESOPHAGEAL REFLUX DISEASE
     Dosage: 40 MG, UNK

REACTIONS (9)
  - Hepatitis acute [Recovering/Resolving]
  - Alanine aminotransferase increased [Recovering/Resolving]
  - Aspartate aminotransferase increased [Recovering/Resolving]
  - Gamma-glutamyltransferase increased [Recovering/Resolving]
  - Jaundice hepatocellular [Recovering/Resolving]
  - Hepatic cirrhosis [Unknown]
  - Skin ulcer [Unknown]
  - Condition aggravated [Unknown]
  - Biopsy liver [Recovered/Resolved]
